FAERS Safety Report 9522966 (Version 1)
Quarter: 2013Q1

REPORT INFORMATION
  Report Type: Spontaneous
  Country: US (occurrence: None)
  Receive Date: 20130305
  Receipt Date: 20130305
  Transmission Date: 20140127
  Serious: Yes (Hospitalization)
  Sender: FDA-Public Use
  Company Number: 163-21880-12070074

PATIENT
  Age: 40 Year
  Sex: Female

DRUGS (11)
  1. REVLIMID (LENALIDOMIDE) (25 MILLIGRAM, CAPSULES) [Suspect]
     Indication: PLASMA CELL MYELOMA
     Dosage: 21 IN 21 D
     Route: 048
     Dates: start: 20120616
  2. REVLIMID (LENALIDOMIDE) (25 MILLIGRAM, CAPSULES) [Suspect]
     Indication: POEMS SYNDROME
     Dosage: 21 IN 21 D
     Route: 048
     Dates: start: 20120616
  3. ASPIRIN (ACETYLSALICYLIS ACID) (UNKNOWN) [Concomitant]
  4. ATENOLOL(ATENOLOL) (UNKNOWN) [Concomitant]
  5. CALCITRIOL (CALCITRIOL) (UNKNOWN) [Concomitant]
  6. CALTRATE (CALCIUM CARBONATE) (UNKNOWN) [Concomitant]
  7. DEXAMETHASONE (DEXAMETHASONE) (UNKNOWN) [Concomitant]
  8. FERROUS SULFATE (FERROUS SULFATE) (UNKNOWN) [Concomitant]
  9. LEVOTHYROXIN (LEVOTHYROXINE SODIUM) (UNKNOWN) [Concomitant]
  10. SODIUM BICARB (SODIUM BICARBONATE) (UNKNOWN) [Concomitant]
  11. OXYGEN (OXYGEN) (UNKNOWN) [Concomitant]

REACTIONS (1)
  - Pneumonia [None]
